FAERS Safety Report 5840629-7 (Version None)
Quarter: 2008Q3

REPORT INFORMATION
  Report Type: 
  Country: None (occurrence: None)
  Receive Date: 20080731
  Receipt Date: 20080519
  Transmission Date: 20090109
  Serious: No
  Sender: FDA-Public Use
  Company Number: US200803006252

PATIENT
  Age: 53 Year
  Sex: Female

DRUGS (5)
  1. BYETTA [Suspect]
     Indication: TYPE 2 DIABETES MELLITUS
     Dosage: 5 UG,10UG,  2/D, SUBCUTANEOUS
     Route: 058
     Dates: start: 20080301, end: 20080501
  2. BYETTA [Suspect]
     Indication: TYPE 2 DIABETES MELLITUS
     Dosage: 5 UG,10UG,  2/D, SUBCUTANEOUS
     Route: 058
     Dates: start: 20080501
  3. BYETTA [Suspect]
  4. ACTOS /USA/ (PIOGLITAZONE HYDROCHLORIDE) [Concomitant]
  5. METFORMIN HCL [Concomitant]

REACTIONS (5)
  - BLOOD GLUCOSE DECREASED [None]
  - INCORRECT DOSE ADMINISTERED [None]
  - INJECTION SITE NODULE [None]
  - INJECTION SITE URTICARIA [None]
  - WEIGHT DECREASED [None]
